FAERS Safety Report 21501532 (Version 1)
Quarter: 2022Q4

REPORT INFORMATION
  Report Type: Spontaneous
  Country: US (occurrence: US)
  Receive Date: 20221025
  Receipt Date: 20221025
  Transmission Date: 20230113
  Serious: Yes (Hospitalization, Other)
  Sender: FDA-Public Use
  Company Number: US-APOTEX-2022AP014565

PATIENT
  Age: 66 Year
  Sex: Male

DRUGS (2)
  1. VALACYCLOVIR [Suspect]
     Active Substance: VALACYCLOVIR HYDROCHLORIDE
     Indication: Herpes zoster
     Dosage: 1 GRAM, TID
     Route: 065
  2. ACETAMINOPHEN\HYDROCODONE [Concomitant]
     Active Substance: ACETAMINOPHEN\HYDROCODONE
     Indication: Herpes zoster
     Dosage: UNK, 5 MG/325 MG Q.6H, AS NEEDED
     Route: 065

REACTIONS (9)
  - Neurotoxicity [Recovering/Resolving]
  - Dysdiadochokinesis [Recovering/Resolving]
  - Muscle spasticity [Recovering/Resolving]
  - Coordination abnormal [Recovering/Resolving]
  - Gait disturbance [Recovering/Resolving]
  - Antiviral drug level above therapeutic [Recovering/Resolving]
  - Nervous system disorder [Recovering/Resolving]
  - Tremor [Recovering/Resolving]
  - Dysarthria [Recovering/Resolving]
